FAERS Safety Report 21918708 (Version 1)
Quarter: 2023Q1

REPORT INFORMATION
  Report Type: Spontaneous
  Country: US (occurrence: None)
  Receive Date: 20230126
  Receipt Date: 20230126
  Transmission Date: 20230418
  Serious: Yes (Hospitalization)
  Sender: FDA-Public Use
  Company Number: None

PATIENT
  Sex: Male

DRUGS (3)
  1. AMINOCAPROIC ACID [Suspect]
     Active Substance: AMINOCAPROIC ACID
     Indication: Factor VII deficiency
     Dosage: 2250 MG AS MEEDED ORAL
     Route: 048
     Dates: start: 20200611
  2. ADVATE [Suspect]
     Active Substance: ANTIHEMOPHILIC FACTOR, HUMAN RECOMBINANT
     Indication: Factor VIII deficiency
     Dosage: FREQUENCY : AS NEEDED ORAL?TOTAL DOSE OR AMOUNT: 650 UNITS.?
     Route: 042
     Dates: start: 20200924
  3. HEMLIBRA [Suspect]
     Active Substance: EMICIZUMAB-KXWH

REACTIONS (3)
  - Mouth haemorrhage [None]
  - Epistaxis [None]
  - Post procedural complication [None]
